FAERS Safety Report 8616432-1 (Version None)
Quarter: 2012Q3

REPORT INFORMATION
  Report Type: 
  Country: None (occurrence: None)
  Receive Date: 20120823
  Receipt Date: 20120817
  Transmission Date: 20120928
  Serious: Yes (Hospitalization)
  Sender: FDA-Public Use
  Company Number: PHHY2012GB070086

PATIENT
  Age: 19 Year
  Sex: Female

DRUGS (6)
  1. BETAMETHASONE [Suspect]
     Dosage: 20 UG/HR, UNK
  2. ATORVASTATIN [Suspect]
     Indication: HYPERTRIGLYCERIDAEMIA
     Dosage: 40 MG, AT NIGHT
  3. FENOFIBRATE [Suspect]
     Dosage: 200 MG, AT NIGHT
  4. ACETYLSALICYLIC ACID SRT [Suspect]
     Dosage: 75 MG, QD
  5. FOLIC ACID [Suspect]
     Dosage: 5 MG, QD
  6. INSULIN [Suspect]
     Indication: MATERNAL THERAPY TO ENHANCE FOETAL LUNG MATURITY
     Dosage: 20 UG/HR, UNK
     Route: 042

REACTIONS (3)
  - PANCREATITIS ACUTE [None]
  - HYPERTRIGLYCERIDAEMIA [None]
  - MATERNAL EXPOSURE DURING PREGNANCY [None]
